FAERS Safety Report 16077749 (Version 1)
Quarter: 2019Q1

REPORT INFORMATION
  Report Type: Spontaneous
  Country: CA (occurrence: CA)
  Receive Date: 20190315
  Receipt Date: 20190315
  Transmission Date: 20190418
  Serious: Yes (Other)
  Sender: FDA-Public Use
  Company Number: CA-PFIZER INC-2019110509

PATIENT
  Age: 67 Year
  Sex: Female

DRUGS (2)
  1. VERAPAMIL HCL [Suspect]
     Active Substance: VERAPAMIL HYDROCHLORIDE
     Dosage: 240 MG, 1X/DAY
     Route: 048
  2. LISINOPRIL. [Suspect]
     Active Substance: LISINOPRIL
     Dosage: 10 MG, 1X/DAY
     Route: 048

REACTIONS (3)
  - Product coating issue [Recovered/Resolved]
  - Product physical issue [Recovered/Resolved]
  - Choking [Recovered/Resolved]
